FAERS Safety Report 5858758-0 (Version None)
Quarter: 2008Q3

REPORT INFORMATION
  Report Type: 
  Country: None (occurrence: None)
  Receive Date: 20080826
  Receipt Date: 20080820
  Transmission Date: 20090109
  Serious: Yes (Hospitalization)
  Sender: FDA-Public Use
  Company Number: JP-ABBOTT-08P-087-0471773-00

PATIENT
  Age: 64 Year
  Sex: Male

DRUGS (4)
  1. CLARITH TABLETS [Suspect]
     Indication: HELICOBACTER INFECTION
     Dates: start: 20050119, end: 20050128
  2. AMOXICILLIN TRIHYDRATE [Suspect]
     Indication: HELICOBACTER INFECTION
     Dates: start: 20050119, end: 20050128
  3. LANSOPRAZOLE [Suspect]
     Indication: HELICOBACTER INFECTION
     Dates: start: 20050119, end: 20050128
  4. MELOXICAM [Concomitant]
     Indication: RHEUMATOID ARTHRITIS

REACTIONS (2)
  - ERYTHEMA [None]
  - PRURITUS [None]
